FAERS Safety Report 10206681 (Version 2)
Quarter: 2014Q2

REPORT INFORMATION
  Report Type: Spontaneous
  Country: JP (occurrence: JP)
  Receive Date: 20140530
  Receipt Date: 20140617
  Transmission Date: 20141212
  Serious: Yes (Hospitalization)
  Sender: FDA-Public Use
  Company Number: JP-AMGEN-JPNSP2014040096

PATIENT
  Age: 51 Year
  Sex: Female

DRUGS (3)
  1. GRAN [Suspect]
     Indication: APLASTIC ANAEMIA
     Dosage: UNK
     Route: 041
  2. ANTITHYMOCYTE IMMUNOGLOBULIN (RABBIT) [Suspect]
     Indication: APLASTIC ANAEMIA
     Dosage: UNK
     Route: 041
  3. CICLOSPORIN [Suspect]
     Indication: APLASTIC ANAEMIA
     Dosage: UNK
     Route: 065

REACTIONS (1)
  - Pneumonia legionella [Recovering/Resolving]
